FAERS Safety Report 21068391 (Version 1)
Quarter: 2022Q3

REPORT INFORMATION
  Report Type: Spontaneous
  Country: ES (occurrence: ES)
  Receive Date: 20220712
  Receipt Date: 20220712
  Transmission Date: 20221027
  Serious: Yes (Disabling)
  Sender: FDA-Public Use
  Company Number: ES-BIAL-BIAL-10570

PATIENT
  Age: 88 Year
  Sex: Male

DRUGS (6)
  1. OMEPRAZOLE [Suspect]
     Active Substance: OMEPRAZOLE
     Indication: Product used for unknown indication
     Dosage: 20 MG (1-0-0, NON-COMPLIANT)
     Route: 065
  2. ENALAPRIL MALEATE\NITRENDIPINE [Suspect]
     Active Substance: ENALAPRIL MALEATE\NITRENDIPINE
     Indication: Product used for unknown indication
     Dosage: 10 MILLIGRAM, QD (10 MG+ 20 MG(1/0/0))
     Route: 065
  3. CARBOCYSTEINE [Concomitant]
     Active Substance: CARBOCYSTEINE
     Dosage: UNK , Q8H (~50 MILLIGRAM PER MILLILITRE (10/10/10)  )
     Route: 065
  4. SIMVASTATIN [Concomitant]
     Active Substance: SIMVASTATIN
     Dosage: 20 MILLIGRAM(0/0/1)
     Route: 065
  5. ACETAMINOPHEN [Concomitant]
     Active Substance: ACETAMINOPHEN
     Indication: Pain
     Dosage: 1 GRAM, PRN (1 GRAM, AS NEEDED)
     Route: 065
  6. FERROUS SULFATE [Concomitant]
     Active Substance: FERROUS SULFATE
     Dosage: 325 MILLIGRAM, QD (325 MILLIGRAM (1/0/0, NON-COMPLIANT)
     Route: 065

REACTIONS (3)
  - Cough [Unknown]
  - Treatment noncompliance [Unknown]
  - Drug ineffective [Unknown]
